FAERS Safety Report 7530145-9 (Version None)
Quarter: 2011Q2

REPORT INFORMATION
  Report Type: 
  Country: None (occurrence: None)
  Receive Date: 20110607
  Receipt Date: 20110602
  Transmission Date: 20111010
  Serious: Yes (Death, Hospitalization)
  Sender: FDA-Public Use
  Company Number: US-US-EMD SERONO, INC.-237365J08USA

PATIENT
  Sex: Female
  Weight: 68 kg

DRUGS (9)
  1. IMURAN [Concomitant]
     Indication: CROHN'S DISEASE
     Route: 065
  2. NEXIUM [Concomitant]
     Indication: GASTROOESOPHAGEAL REFLUX DISEASE
     Route: 065
  3. REMICADE [Concomitant]
     Indication: CROHN'S DISEASE
     Route: 065
  4. REBIF [Suspect]
     Indication: MULTIPLE SCLEROSIS
     Route: 058
     Dates: start: 20071109
  5. NEURONTIN [Concomitant]
     Indication: MULTIPLE SCLEROSIS
     Route: 065
  6. ALPHAGAN [Concomitant]
     Indication: GLAUCOMA
     Route: 065
  7. COSOPT [Concomitant]
     Indication: GLAUCOMA
     Route: 065
  8. ASACOL [Concomitant]
     Indication: CROHN'S DISEASE
     Route: 065
  9. XALATAN [Concomitant]
     Indication: GLAUCOMA
     Route: 065

REACTIONS (2)
  - DEATH [None]
  - PNEUMONIA [None]
